FAERS Safety Report 10618495 (Version 1)
Quarter: 2014Q4

REPORT INFORMATION
  Report Type: Spontaneous
  Country: US (occurrence: US)
  Receive Date: 20141202
  Receipt Date: 20141202
  Transmission Date: 20150529
  Serious: No
  Sender: FDA-Public Use
  Company Number: US-TEVA-488315USA

PATIENT
  Age: 38 Year
  Sex: Female

DRUGS (3)
  1. BENZONATATE. [Suspect]
     Active Substance: BENZONATATE
     Indication: BRONCHITIS
     Dosage: 100 MILLIGRAM DAILY;
     Route: 048
     Dates: start: 20140606, end: 20140609
  2. AZITHROMYCIN [Suspect]
     Active Substance: AZITHROMYCIN ANHYDROUS
     Indication: BRONCHITIS
     Dosage: TAPER
     Route: 048
     Dates: start: 20140606, end: 20140609
  3. PREDNISONE. [Suspect]
     Active Substance: PREDNISONE
     Indication: BRONCHITIS
     Dosage: 3 TABS EVERY 12 HOURS FOR 5 DAYS
     Route: 048
     Dates: start: 20140606, end: 20140609

REACTIONS (1)
  - Urticaria [Recovered/Resolved]

NARRATIVE: CASE EVENT DATE: 20140609
